FAERS Safety Report 24268296 (Version 3)
Quarter: 2025Q3

REPORT INFORMATION
  Report Type: Spontaneous
  Country: US (occurrence: US)
  Receive Date: 20240830
  Receipt Date: 20250728
  Transmission Date: 20251021
  Serious: No
  Sender: PFIZER
  Company Number: US-PFIZER INC-PV202400112513

PATIENT
  Age: 24 Year
  Sex: Female

DRUGS (7)
  1. LITFULO [Suspect]
     Active Substance: RITLECITINIB TOSYLATE
     Indication: Alopecia areata
     Dosage: 50 MG, DAILY
     Route: 048
     Dates: start: 20240709
  2. FLUOCINONIDE [Concomitant]
     Active Substance: FLUOCINONIDE
  3. KENALOG [Concomitant]
     Active Substance: TRIAMCINOLONE ACETONIDE
  4. KYLEENA [Concomitant]
     Active Substance: LEVONORGESTREL
  5. MIBELAS 24 FE [Concomitant]
     Active Substance: ETHINYL ESTRADIOL\NORETHINDRONE ACETATE
  6. OLUMIANT [Concomitant]
     Active Substance: BARICITINIB
  7. PHENTERMINE [Concomitant]
     Active Substance: PHENTERMINE

REACTIONS (2)
  - Drug ineffective [Not Recovered/Not Resolved]
  - Product dose omission issue [Unknown]
